FAERS Safety Report 16098411 (Version 1)
Quarter: 2019Q1

REPORT INFORMATION
  Report Type: Spontaneous
  Country: SE (occurrence: SE)
  Receive Date: 20190321
  Receipt Date: 20190321
  Transmission Date: 20190418
  Serious: Yes (Other)
  Sender: FDA-Public Use
  Company Number: SE-TEVA-2019-SE-1026963

PATIENT
  Age: 28 Year
  Sex: Male

DRUGS (7)
  1. ZOLPIDEM [Suspect]
     Active Substance: ZOLPIDEM\ZOLPIDEM TARTRATE
     Indication: SLEEP DISORDER
     Dates: start: 20190213, end: 20190214
  2. VENLAFAXIN [Concomitant]
     Active Substance: VENLAFAXINE HYDROCHLORIDE
  3. STESOLID [Concomitant]
     Active Substance: DIAZEPAM
  4. SILDENAFIL. [Concomitant]
     Active Substance: SILDENAFIL
  5. QUETIAPINE. [Concomitant]
     Active Substance: QUETIAPINE
  6. DIFLUCAN [Concomitant]
     Active Substance: FLUCONAZOLE
  7. THERALEN [Concomitant]
     Active Substance: TRIMEPRAZINE

REACTIONS (2)
  - Hallucinations, mixed [Recovered/Resolved]
  - Amnesia [Recovered/Resolved]

NARRATIVE: CASE EVENT DATE: 20190214
